FAERS Safety Report 8072933-9 (Version None)
Quarter: 2012Q1

REPORT INFORMATION
  Report Type: 
  Country: None (occurrence: None)
  Receive Date: 20120120
  Receipt Date: 20120109
  Transmission Date: 20120608
  Serious: Yes (Death, Hospitalization)
  Sender: FDA-Public Use
  Company Number: 2012-000152

PATIENT
  Age: 79 Year
  Sex: Female

DRUGS (4)
  1. ANTIEPILEPTICS () [Suspect]
  2. ENABLEX [Suspect]
     Indication: HYPERTONIC BLADDER
     Dosage: 15MG DAILY, ORAL
     Route: 048
     Dates: start: 20101107, end: 20101222
  3. BROMOPRIDE (BROMOPRIDE) [Concomitant]
  4. MIRTAZAPINE [Concomitant]

REACTIONS (9)
  - CARDIAC FAILURE [None]
  - BRADYPHRENIA [None]
  - SOMNOLENCE [None]
  - HYPERSOMNIA [None]
  - DEPRESSED MOOD [None]
  - SLOW RESPONSE TO STIMULI [None]
  - DRUG INTERACTION [None]
  - RESPIRATORY FAILURE [None]
  - MOOD ALTERED [None]
